FAERS Safety Report 8620874-8 (Version None)
Quarter: 2012Q3

REPORT INFORMATION
  Report Type: 
  Country: None (occurrence: None)
  Receive Date: 20120824
  Receipt Date: 20100827
  Transmission Date: 20120928
  Serious: Yes (Death)
  Sender: FDA-Public Use
  Company Number: US-ROCHE-1106655

PATIENT
  Sex: Female

DRUGS (5)
  1. XELODA [Suspect]
     Indication: BREAST CANCER
  2. XELODA [Suspect]
     Indication: CHRONIC LYMPHOCYTIC LEUKAEMIA
  3. ACTIVASE [Suspect]
     Indication: MEDICAL DEVICE COMPLICATION
  4. ACTIVASE [Suspect]
     Indication: IMPLANT SITE REACTION
  5. ACTIVASE [Suspect]
     Indication: GRAFT COMPLICATION

REACTIONS (1)
  - DEATH [None]
